FAERS Safety Report 23346404 (Version 3)
Quarter: 2024Q2

REPORT INFORMATION
  Report Type: Report from Study
  Country: US (occurrence: US)
  Receive Date: 20231228
  Receipt Date: 20240527
  Transmission Date: 20240716
  Serious: Yes (Hospitalization, Other)
  Sender: FDA-Public Use
  Company Number: US-ABBVIE-5562224

PATIENT
  Sex: Female

DRUGS (2)
  1. IMBRUVICA [Suspect]
     Active Substance: IBRUTINIB
     Indication: Chronic lymphocytic leukaemia
     Route: 048
     Dates: start: 20180926
  2. IMBRUVICA [Suspect]
     Active Substance: IBRUTINIB
     Indication: Chronic lymphocytic leukaemia
     Dosage: LAST ADMIN DATE 2018
     Route: 048
     Dates: start: 201809

REACTIONS (5)
  - Illness [Recovering/Resolving]
  - COVID-19 [Unknown]
  - Memory impairment [Unknown]
  - Lymphoedema [Unknown]
  - Skin discharge [Recovering/Resolving]

NARRATIVE: CASE EVENT DATE: 20230101
